FAERS Safety Report 7248136-4 (Version None)
Quarter: 2011Q1

REPORT INFORMATION
  Report Type: 
  Country: None (occurrence: None)
  Receive Date: 20110127
  Receipt Date: 20110117
  Transmission Date: 20110831
  Serious: Yes (Death, Hospitalization)
  Sender: FDA-Public Use
  Company Number: US-BAXTER-2011BH001361

PATIENT
  Age: 87 Year
  Sex: Male

DRUGS (2)
  1. DIANEAL [Suspect]
     Indication: PERITONEAL DIALYSIS
     Route: 033
     Dates: start: 20100106, end: 20101101
  2. DIANEAL [Suspect]
     Indication: RENAL FAILURE CHRONIC
     Route: 033
     Dates: start: 20100106, end: 20101101

REACTIONS (5)
  - RENAL FAILURE CHRONIC [None]
  - WOUND SECRETION [None]
  - DEATH [None]
  - CONFUSIONAL STATE [None]
  - HYPERSOMNIA [None]
